FAERS Safety Report 15915435 (Version 1)
Quarter: 2019Q1

REPORT INFORMATION
  Report Type: Spontaneous
  Country: US (occurrence: US)
  Receive Date: 20190112
  Receipt Date: 20190112
  Transmission Date: 20190417
  Serious: Yes (Hospitalization)
  Sender: FDA-Public Use
  Company Number: None

PATIENT
  Age: 72 Year
  Sex: Male
  Weight: 142.43 kg

DRUGS (1)
  1. ELIQUIS [Suspect]
     Active Substance: APIXABAN
     Indication: ATRIAL FIBRILLATION
     Route: 048
     Dates: start: 20180501

REACTIONS (4)
  - Deep vein thrombosis [None]
  - Rash erythematous [None]
  - Arthropod bite [None]
  - Cellulitis [None]

NARRATIVE: CASE EVENT DATE: 20181222
